FAERS Safety Report 12172953 (Version 2)
Quarter: 2016Q2

REPORT INFORMATION
  Report Type: Spontaneous
  Country: US (occurrence: US)
  Receive Date: 20160311
  Receipt Date: 20160413
  Transmission Date: 20160815
  Serious: Yes (Hospitalization)
  Sender: FDA-Public Use
  Company Number: US-BAYER-2016-047963

PATIENT
  Age: 44 Year
  Sex: Female

DRUGS (1)
  1. MIRENA [Suspect]
     Active Substance: LEVONORGESTREL
     Indication: MENORRHAGIA
     Dosage: 20 MCG/24HR, CONT
     Route: 015
     Dates: start: 20131223, end: 20150713

REACTIONS (9)
  - Pelvic pain [None]
  - Emotional distress [None]
  - Embedded device [None]
  - Abdominal pain lower [None]
  - Uterine disorder [None]
  - Post-traumatic pain [None]
  - Hydrometra [None]
  - Vaginal haemorrhage [None]
  - Device difficult to use [None]

NARRATIVE: CASE EVENT DATE: 20150416
